FAERS Safety Report 19760429 (Version 1)
Quarter: 2021Q3

REPORT INFORMATION
  Report Type: Spontaneous
  Country: US (occurrence: US)
  Receive Date: 20210830
  Receipt Date: 20210830
  Transmission Date: 20211014
  Serious: No
  Sender: FDA-Public Use
  Company Number: US-TARO-2020TAR01332

PATIENT
  Sex: Female

DRUGS (1)
  1. CLOBETASOL PROPIONATE 0.05% [Suspect]
     Active Substance: CLOBETASOL PROPIONATE
     Indication: PRODUCT USED FOR UNKNOWN INDICATION
     Dosage: UNK
     Route: 061

REACTIONS (2)
  - Burning sensation [Unknown]
  - Product odour abnormal [Unknown]
